FAERS Safety Report 16249134 (Version 1)
Quarter: 2019Q2

REPORT INFORMATION
  Report Type: Spontaneous
  Country: FR (occurrence: FR)
  Receive Date: 20190429
  Receipt Date: 20190429
  Transmission Date: 20190711
  Serious: Yes (Hospitalization)
  Sender: FDA-Public Use
  Company Number: FR-ACCORD-124774

PATIENT
  Age: 90 Year
  Sex: Male
  Weight: 68 kg

DRUGS (2)
  1. GEMCITABINE SANDOZ [Suspect]
     Active Substance: GEMCITABINE\GEMCITABINE HYDROCHLORIDE
     Indication: BLADDER CANCER STAGE IV
     Route: 041
     Dates: start: 20190131
  2. CARBOPLATIN ACCORD [Suspect]
     Active Substance: CARBOPLATIN
     Indication: BLADDER CANCER
     Route: 041
     Dates: start: 20190124

REACTIONS (5)
  - Neutropenia [Recovered/Resolved]
  - Melaena [Recovered/Resolved]
  - Anaemia [Recovering/Resolving]
  - Off label use [Unknown]
  - Thrombocytopenia [Recovered/Resolved]

NARRATIVE: CASE EVENT DATE: 20190207
